FAERS Safety Report 8883065 (Version 1)
Quarter: 2012Q4

REPORT INFORMATION
  Report Type: 
  Country: US (occurrence: US)
  Receive Date: 20121102
  Receipt Date: 20121102
  Transmission Date: 20130627
  Serious: Yes (Other)
  Sender: FDA-Public Use
  Company Number: PHHY2012US098557

PATIENT
  Age: 8 Year
  Sex: Female

DRUGS (5)
  1. OXCARBAZEPINE [Suspect]
     Indication: EPILEPSY
     Dosage: UNK
  2. OXCARBAZEPINE [Suspect]
     Dosage: 1050 mg, Daily
  3. CONCERTA [Concomitant]
     Indication: DISTURBANCE IN ATTENTION
     Dosage: 18 mg, Daily
  4. CONCERTA [Concomitant]
     Dosage: 275 mg, Daily
  5. ASPIRIN [Concomitant]

REACTIONS (1)
  - Thyroxine free decreased [Recovered/Resolved]
